FAERS Safety Report 17148661 (Version 1)
Quarter: 2019Q4

REPORT INFORMATION
  Report Type: Spontaneous
  Country: DK (occurrence: DK)
  Receive Date: 20191213
  Receipt Date: 20191213
  Transmission Date: 20200122
  Serious: Yes (Hospitalization, Other)
  Sender: FDA-Public Use
  Company Number: DK-SA-2019SA323686

PATIENT
  Age: 63 Year
  Sex: Male

DRUGS (1)
  1. INDAPAMIDE. [Suspect]
     Active Substance: INDAPAMIDE
     Indication: HYPERTENSION
     Dosage: 2.5 MG, QD
     Route: 065

REACTIONS (7)
  - Muscle fatigue [Recovering/Resolving]
  - Asthenia [Unknown]
  - Paresis [Recovered/Resolved]
  - Hypokalaemia [Recovered/Resolved]
  - Bedridden [Unknown]
  - Hyperglycaemia [Recovered/Resolved]
  - Glycosuria [Unknown]
